FAERS Safety Report 5669310-4 (Version None)
Quarter: 2008Q1

REPORT INFORMATION
  Report Type: 
  Country: None (occurrence: None)
  Receive Date: 20080317
  Receipt Date: 20080310
  Transmission Date: 20080703
  Serious: Yes (Death, Hospitalization, Disabling, Other)
  Sender: FDA-Public Use
  Company Number: PHFR2007GB03313

PATIENT
  Age: 54 Year
  Sex: Male

DRUGS (8)
  1. CLOZARIL [Suspect]
     Indication: SCHIZOPHRENIA
     Dosage: 200 MG, BID
     Route: 048
     Dates: start: 20071113
  2. CLOZARIL [Suspect]
     Dosage: 550MG DAILY
     Route: 048
     Dates: start: 19920703
  3. EPILIM [Concomitant]
     Indication: AFFECTIVE DISORDER
     Dosage: 400 MG/DAY
     Route: 048
  4. LANSOPRAZOLE [Concomitant]
     Indication: GASTROINTESTINAL DISORDER
     Dosage: 60 MG/DAY
     Route: 048
  5. SERTRALINE [Concomitant]
     Indication: DEPRESSION
     Dosage: 100 MG/DAY
     Route: 048
  6. HYOSCINE [Concomitant]
     Indication: SALIVARY HYPERSECRETION
     Dosage: 600 UG/DAY
     Route: 048
  7. MOVICOL [Concomitant]
     Indication: GASTROINTESTINAL DISORDER
     Dosage: 4 (NO UNIT)
     Route: 048
  8. CLEXANE [Concomitant]
     Indication: ANTICOAGULANT THERAPY
     Dosage: 40 MG/DAY
     Route: 058

REACTIONS (8)
  - EMPYEMA [None]
  - ERYSIPELAS [None]
  - GENERAL PHYSICAL HEALTH DETERIORATION [None]
  - LUNG ABSCESS [None]
  - PNEUMONIA [None]
  - SEPSIS [None]
  - SOMNOLENCE [None]
  - WHITE BLOOD CELL COUNT DECREASED [None]
